FAERS Safety Report 8777368 (Version 3)
Quarter: 2013Q1

REPORT INFORMATION
  Report Type: Spontaneous
  Country: US (occurrence: US)
  Receive Date: 20120911
  Receipt Date: 20130109
  Transmission Date: 20140127
  Serious: No
  Sender: FDA-Public Use
  Company Number: US-PFIZER INC-2012221017

PATIENT
  Age: 51 Year
  Sex: Female
  Weight: 52.2 kg

DRUGS (2)
  1. SOLU-MEDROL [Suspect]
     Indication: ADDISON^S DISEASE
     Dosage: UNK
     Dates: start: 201111, end: 201206
  2. SOLU-MEDROL [Suspect]
     Dosage: 40 MG/ML, 2X/DAY
     Dates: start: 201207

REACTIONS (10)
  - Product packaging quantity issue [Unknown]
  - Product quality issue [Unknown]
  - Incorrect dose administered [Unknown]
  - Weight increased [Not Recovered/Not Resolved]
  - Muscular weakness [Not Recovered/Not Resolved]
  - Mood swings [Not Recovered/Not Resolved]
  - Irritability [Not Recovered/Not Resolved]
  - Stress [Unknown]
  - Cushingoid [Unknown]
  - Blood corticotrophin decreased [Unknown]
